FAERS Safety Report 7461226-6 (Version None)
Quarter: 2011Q2

REPORT INFORMATION
  Report Type: 
  Country: None (occurrence: None)
  Receive Date: 20110506
  Receipt Date: 20110503
  Transmission Date: 20111010
  Serious: Yes (Other)
  Sender: FDA-Public Use
  Company Number: US-BRISTOL-MYERS SQUIBB COMPANY-15713886

PATIENT
  Age: 61 Year
  Sex: Female

DRUGS (13)
  1. WELLBUTRIN [Concomitant]
  2. ZANTAC [Concomitant]
  3. AMBIEN [Concomitant]
  4. ALLEGRA [Concomitant]
  5. DEXLANSOPRAZOLE [Concomitant]
  6. HYDROMORPHONE [Concomitant]
  7. PHENERGAN HCL [Concomitant]
  8. COZAAR [Concomitant]
  9. MAXZIDE [Concomitant]
  10. CYMBALTA [Concomitant]
  11. YERVOY [Suspect]
     Dates: start: 20110401
  12. OXYCODONE [Concomitant]
  13. IMODIUM [Concomitant]

REACTIONS (2)
  - VOMITING [None]
  - DIARRHOEA [None]
